FAERS Safety Report 6000782-1 (Version None)
Quarter: 2008Q4

REPORT INFORMATION
  Report Type: 
  Country: None (occurrence: None)
  Receive Date: 20081215
  Receipt Date: 20081210
  Transmission Date: 20090506
  Serious: Yes (Death)
  Sender: FDA-Public Use
  Company Number: US-BRISTOL-MYERS SQUIBB COMPANY-14439376

PATIENT
  Age: 59 Year
  Sex: Female

DRUGS (4)
  1. IXEMPRA KIT [Suspect]
     Indication: BREAST CANCER METASTATIC
     Route: 042
  2. BENADRYL [Concomitant]
     Indication: PREMEDICATION
  3. ZANTAC [Concomitant]
     Indication: PREMEDICATION
  4. ZOFRAN [Concomitant]
     Indication: PREMEDICATION

REACTIONS (1)
  - CARDIAC ARREST [None]
